FAERS Safety Report 13716719 (Version 1)
Quarter: 2017Q3

REPORT INFORMATION
  Report Type: Spontaneous
  Country: US (occurrence: US)
  Receive Date: 20170705
  Receipt Date: 20170705
  Transmission Date: 20171127
  Serious: No
  Sender: FDA-Public Use
  Company Number: US-LUPIN PHARMACEUTICALS INC.-2016-05550

PATIENT
  Sex: Female
  Weight: 76.2 kg

DRUGS (1)
  1. SIMVASTATIN TABLETS USP, 20 MG [Suspect]
     Active Substance: SIMVASTATIN
     Dosage: STARTED TO TAKE 6-7 YEAR AGO
     Route: 065

REACTIONS (1)
  - Muscle spasms [Recovered/Resolved]
